FAERS Safety Report 8127751-X (Version None)
Quarter: 2011Q4

REPORT INFORMATION
  Report Type: 
  Country: None (occurrence: None)
  Receive Date: 20111227
  Receipt Date: 20110901
  Transmission Date: 20120403
  Serious: No
  Sender: FDA-Public Use
  Company Number: PHHY2011US64801

PATIENT
  Age: 59 Year
  Sex: Female

DRUGS (8)
  1. FISH OIL (FISH OIL) [Concomitant]
  2. NEURONTIN [Concomitant]
  3. TRAZODONE HCL [Concomitant]
  4. GILENYA [Suspect]
     Dosage: 0.5 MG, QD, ORAL
     Route: 048
     Dates: start: 20110401
  5. MULTIVITAMIN [Concomitant]
  6. PRAVASTATIN [Concomitant]
  7. VIIBRYD [Suspect]
     Dosage: 10 MG 20 MG 40 MG
  8. EFFEXOR XR [Concomitant]

REACTIONS (3)
  - NAUSEA [None]
  - FEELING ABNORMAL [None]
  - DIARRHOEA [None]
